FAERS Safety Report 9160492 (Version 5)
Quarter: 2013Q2

REPORT INFORMATION
  Report Type: Spontaneous
  Country: JP (occurrence: None)
  Receive Date: 20130219
  Receipt Date: 20130502
  Transmission Date: 20140414
  Serious: Yes (Death)
  Sender: FDA-Public Use
  Company Number: JP-010849

PATIENT
  Age: 69 Year
  Sex: Male
  Weight: 60 kg

DRUGS (11)
  1. GONAX [Suspect]
     Indication: PROSTATE CANCER
     Dosage: 240 MG, 1X, SC
     Route: 058
     Dates: start: 20130115, end: 20130115
  2. ZOLADEX /00732102/ [Concomitant]
  3. BUP-4 [Concomitant]
  4. LOXONIN [Concomitant]
  5. OLMETEC [Concomitant]
  6. ARTIST [Concomitant]
  7. AMLODIN [Concomitant]
  8. MUCOSTA [Concomitant]
  9. PARIET [Concomitant]
  10. PREDONINE /00016201/ [Concomitant]
  11. LASIX /00032601/ [Concomitant]

REACTIONS (7)
  - Cerebral haemorrhage [None]
  - Wrong technique in drug usage process [None]
  - Injection site pain [None]
  - Injection site erythema [None]
  - Injection site induration [None]
  - Platelet count decreased [None]
  - Blood pressure increased [None]
